FAERS Safety Report 5233415-2 (Version None)
Quarter: 2007Q1

REPORT INFORMATION
  Report Type: 
  Country: None (occurrence: None)
  Receive Date: 20070208
  Receipt Date: 20070131
  Transmission Date: 20070707
  Serious: Yes (Death)
  Sender: FDA-Public Use
  Company Number: NLWYE072629SEP06

PATIENT
  Sex: Female

DRUGS (3)
  1. RAPAMUNE [Suspect]
     Indication: LUNG TRANSPLANT
     Dosage: UNKNOWN
  2. RAPAMUNE [Suspect]
     Dosage: UNKNOWN
  3. CYCLOSPORINE [Suspect]

REACTIONS (1)
  - THROMBOTIC MICROANGIOPATHY [None]
